FAERS Safety Report 8297312-0 (Version None)
Quarter: 2012Q2

REPORT INFORMATION
  Report Type: 
  Country: None (occurrence: None)
  Receive Date: 20120416
  Receipt Date: 20120229
  Transmission Date: 20120825
  Serious: Yes (Hospitalization, Other)
  Sender: FDA-Public Use
  Company Number: DSA_55754_2012

PATIENT
  Age: 65 Year
  Sex: Male

DRUGS (5)
  1. ASPIRIN [Concomitant]
  2. VERAPAMIL HCL [Concomitant]
  3. ENALAPRIL MALEATE [Suspect]
     Indication: PRODUCT USED FOR UNKNOWN INDICATION
     Dosage: DF ORAL
     Route: 048
  4. LANIRAPID [Concomitant]
  5. LASIX [Concomitant]

REACTIONS (7)
  - TONGUE BITING [None]
  - BLOOD PRESSURE INCREASED [None]
  - ANGIOEDEMA [None]
  - HYPERSENSITIVITY [None]
  - VOMITING [None]
  - DYSPNOEA [None]
  - CONJUNCTIVAL HYPERAEMIA [None]
